FAERS Safety Report 9803803 (Version 1)
Quarter: 2014Q1

REPORT INFORMATION
  Report Type: Spontaneous
  Country: US (occurrence: None)
  Receive Date: 20140107
  Receipt Date: 20140107
  Transmission Date: 20141002
  Serious: No
  Sender: FDA-Public Use
  Company Number: None

PATIENT
  Age: 56 Year
  Sex: Male

DRUGS (1)
  1. INCIVEK 375MG VERTEX [Suspect]
     Indication: HEPATITIS C
     Route: 048
     Dates: start: 20130930, end: 20131218

REACTIONS (1)
  - Pneumonia [None]
